FAERS Safety Report 23056192 (Version 9)
Quarter: 2025Q1

REPORT INFORMATION
  Report Type: Spontaneous
  Country: PT (occurrence: PT)
  Receive Date: 20231011
  Receipt Date: 20250131
  Transmission Date: 20250408
  Serious: Yes (Death, Other)
  Sender: SANDOZ
  Company Number: PT-UCBSA-2022001523

PATIENT
  Age: 27 Year
  Weight: 144 kg

DRUGS (164)
  1. ATORVASTATIN CALCIUM [Suspect]
     Active Substance: ATORVASTATIN CALCIUM
     Indication: Product used for unknown indication
     Route: 065
  2. ATORVASTATIN CALCIUM [Suspect]
     Active Substance: ATORVASTATIN CALCIUM
     Route: 065
  3. ASPIRIN [Suspect]
     Active Substance: ASPIRIN
     Indication: Product used for unknown indication
     Route: 065
  4. CODEINE [Suspect]
     Active Substance: CODEINE
     Indication: Product used for unknown indication
     Route: 065
  5. CODEINE [Suspect]
     Active Substance: CODEINE
     Indication: Product used for unknown indication
     Route: 065
  6. CODEINE PHOSPHATE [Suspect]
     Active Substance: CODEINE PHOSPHATE
     Indication: Product used for unknown indication
     Route: 065
  7. CODEINE PHOSPHATE [Suspect]
     Active Substance: CODEINE PHOSPHATE
     Indication: Product used for unknown indication
     Route: 065
  8. CODEINE SULFATE [Suspect]
     Active Substance: CODEINE SULFATE
     Indication: Product used for unknown indication
     Route: 065
  9. CODEINE SULFATE [Suspect]
     Active Substance: CODEINE SULFATE
     Indication: Product used for unknown indication
     Route: 065
  10. CHOLECALCIFEROL [Suspect]
     Active Substance: CHOLECALCIFEROL
     Indication: Product used for unknown indication
     Route: 065
  11. DOMPERIDONE [Suspect]
     Active Substance: DOMPERIDONE
     Indication: Product used for unknown indication
     Route: 065
  12. GINKGO [Suspect]
     Active Substance: GINKGO
     Indication: Product used for unknown indication
     Route: 065
  13. NITROGLYCERIN [Suspect]
     Active Substance: NITROGLYCERIN
     Indication: Product used for unknown indication
     Route: 065
  14. NITROGLYCERIN [Suspect]
     Active Substance: NITROGLYCERIN
     Indication: Product used for unknown indication
     Route: 065
  15. RABIES IMMUNE GLOBULIN (HUMAN) [Suspect]
     Active Substance: RABIES IMMUNE GLOBULIN (HUMAN)
     Indication: Product used for unknown indication
     Route: 065
  16. RABIES IMMUNE GLOBULIN (HUMAN) [Suspect]
     Active Substance: RABIES IMMUNE GLOBULIN (HUMAN)
     Indication: Product used for unknown indication
     Route: 065
  17. HYDROMORPHONE HCL [Suspect]
     Active Substance: HYDROMORPHONE HYDROCHLORIDE
     Indication: Product used for unknown indication
     Route: 065
  18. IBANDRONATE SODIUM [Suspect]
     Active Substance: IBANDRONATE SODIUM
     Indication: Product used for unknown indication
     Route: 065
  19. INDOMETHACIN [Suspect]
     Active Substance: INDOMETHACIN
     Indication: Product used for unknown indication
     Route: 065
  20. INDOMETHACIN [Suspect]
     Active Substance: INDOMETHACIN
     Route: 065
  21. HYDROMORPHONE HYDROCHLORIDE [Suspect]
     Active Substance: HYDROMORPHONE HYDROCHLORIDE
     Indication: Product used for unknown indication
     Route: 065
  22. HYDROMORPHONE HYDROCHLORIDE [Suspect]
     Active Substance: HYDROMORPHONE HYDROCHLORIDE
     Indication: Product used for unknown indication
     Route: 065
  23. MOTILIUM [Suspect]
     Active Substance: DOMPERIDONE
     Indication: Product used for unknown indication
     Route: 065
  24. MOTILIUM [Suspect]
     Active Substance: DOMPERIDONE
     Indication: Product used for unknown indication
     Route: 065
  25. NITROGLYCERIN [Suspect]
     Active Substance: NITROGLYCERIN
     Indication: Product used for unknown indication
     Route: 065
  26. NITROGLYCERIN [Suspect]
     Active Substance: NITROGLYCERIN
     Indication: Product used for unknown indication
     Route: 065
  27. NORFLOXACIN [Suspect]
     Active Substance: NORFLOXACIN
     Indication: Product used for unknown indication
     Route: 065
  28. VENLAFAXINE HYDROCHLORIDE [Suspect]
     Active Substance: VENLAFAXINE HYDROCHLORIDE
     Indication: Product used for unknown indication
     Route: 065
  29. VENLAFAXINE HYDROCHLORIDE [Suspect]
     Active Substance: VENLAFAXINE HYDROCHLORIDE
     Indication: Product used for unknown indication
     Route: 065
  30. VENLAFAXINE HCL [Suspect]
     Active Substance: VENLAFAXINE HYDROCHLORIDE
     Indication: Product used for unknown indication
     Route: 065
  31. XYZAL [Suspect]
     Active Substance: LEVOCETIRIZINE DIHYDROCHLORIDE
     Indication: Product used for unknown indication
     Route: 065
  32. ADALIMUMAB [Interacting]
     Active Substance: ADALIMUMAB
     Indication: Product used for unknown indication
     Route: 042
  33. ACECLOFENAC [Interacting]
     Active Substance: ACECLOFENAC
     Indication: Product used for unknown indication
     Route: 065
  34. ASPIRIN [Interacting]
     Active Substance: ASPIRIN
     Route: 065
  35. ASPIRIN [Interacting]
     Active Substance: ASPIRIN
     Indication: Product used for unknown indication
     Route: 065
  36. ASPIRIN [Interacting]
     Active Substance: ASPIRIN
     Route: 065
  37. ASPIRIN [Interacting]
     Active Substance: ASPIRIN
     Route: 065
  38. ASPIRIN [Interacting]
     Active Substance: ASPIRIN
     Route: 065
  39. ASPIRIN [Interacting]
     Active Substance: ASPIRIN
     Route: 065
  40. ASPIRIN [Interacting]
     Active Substance: ASPIRIN
     Route: 065
  41. ASPIRIN [Interacting]
     Active Substance: ASPIRIN
     Route: 065
  42. ASPIRIN [Interacting]
     Active Substance: ASPIRIN
     Route: 065
  43. ASPIRIN [Interacting]
     Active Substance: ASPIRIN
     Route: 065
  44. ASPIRIN [Interacting]
     Active Substance: ASPIRIN
     Route: 065
  45. ASPIRIN [Interacting]
     Active Substance: ASPIRIN
     Route: 065
  46. ASPIRIN [Interacting]
     Active Substance: ASPIRIN
     Route: 065
  47. ASPIRIN [Interacting]
     Active Substance: ASPIRIN
     Route: 065
  48. ASPIRIN [Interacting]
     Active Substance: ASPIRIN
     Route: 065
  49. ASPIRIN [Interacting]
     Active Substance: ASPIRIN
     Route: 065
  50. ASPIRIN [Interacting]
     Active Substance: ASPIRIN
     Route: 065
  51. ASPIRIN [Interacting]
     Active Substance: ASPIRIN
     Route: 065
  52. ASPIRIN [Interacting]
     Active Substance: ASPIRIN
     Route: 065
  53. ASPIRIN [Interacting]
     Active Substance: ASPIRIN
     Route: 065
  54. ASPIRIN [Interacting]
     Active Substance: ASPIRIN
     Route: 065
  55. ASPIRIN [Interacting]
     Active Substance: ASPIRIN
     Route: 065
  56. ASPIRIN [Interacting]
     Active Substance: ASPIRIN
     Route: 065
  57. ASPIRIN [Interacting]
     Active Substance: ASPIRIN
     Route: 065
  58. ASPIRIN [Interacting]
     Active Substance: ASPIRIN
     Route: 065
  59. ASPIRIN [Interacting]
     Active Substance: ASPIRIN
     Route: 065
  60. ASPIRIN [Interacting]
     Active Substance: ASPIRIN
     Route: 065
  61. ASPIRIN [Interacting]
     Active Substance: ASPIRIN
     Route: 065
  62. ASPIRIN [Interacting]
     Active Substance: ASPIRIN
     Route: 065
  63. ASPIRIN [Interacting]
     Active Substance: ASPIRIN
     Route: 065
  64. ASPIRIN [Interacting]
     Active Substance: ASPIRIN
     Route: 065
  65. ASPIRIN [Interacting]
     Active Substance: ASPIRIN
     Route: 065
  66. ASPIRIN [Interacting]
     Active Substance: ASPIRIN
     Route: 065
  67. ASPIRIN [Interacting]
     Active Substance: ASPIRIN
     Route: 065
  68. ASPIRIN [Interacting]
     Active Substance: ASPIRIN
     Route: 065
  69. ASPIRIN [Interacting]
     Active Substance: ASPIRIN
     Route: 065
  70. ASPIRIN [Interacting]
     Active Substance: ASPIRIN
     Route: 065
  71. ASPIRIN [Interacting]
     Active Substance: ASPIRIN
     Route: 065
  72. ASPIRIN [Interacting]
     Active Substance: ASPIRIN
     Route: 065
  73. ASPIRIN [Interacting]
     Active Substance: ASPIRIN
     Route: 065
  74. ASPIRIN [Interacting]
     Active Substance: ASPIRIN
     Route: 065
  75. ASPIRIN [Interacting]
     Active Substance: ASPIRIN
     Route: 065
  76. ASPIRIN [Interacting]
     Active Substance: ASPIRIN
     Route: 065
  77. ASPIRIN [Interacting]
     Active Substance: ASPIRIN
     Route: 065
  78. ASPIRIN [Interacting]
     Active Substance: ASPIRIN
     Route: 065
  79. ASPIRIN [Interacting]
     Active Substance: ASPIRIN
     Route: 065
  80. ASPIRIN [Interacting]
     Active Substance: ASPIRIN
     Route: 065
  81. ASPIRIN [Interacting]
     Active Substance: ASPIRIN
     Route: 065
  82. ASPIRIN [Interacting]
     Active Substance: ASPIRIN
     Route: 065
  83. ASPIRIN [Interacting]
     Active Substance: ASPIRIN
     Route: 065
  84. AGOMELATINE [Interacting]
     Active Substance: AGOMELATINE
     Indication: Product used for unknown indication
     Route: 065
  85. ALENDRONIC ACID [Interacting]
     Active Substance: ALENDRONIC ACID
     Indication: Product used for unknown indication
     Route: 048
  86. ALISKIREN [Interacting]
     Active Substance: ALISKIREN
     Indication: Product used for unknown indication
     Route: 065
  87. ALISKIREN [Interacting]
     Active Substance: ALISKIREN
     Route: 065
  88. ANASTROZOLE [Interacting]
     Active Substance: ANASTROZOLE
     Indication: Product used for unknown indication
     Route: 065
  89. BISOPROLOL FUMARATE [Interacting]
     Active Substance: BISOPROLOL FUMARATE
     Indication: Product used for unknown indication
     Route: 065
  90. BRINZOLAMIDE [Interacting]
     Active Substance: BRINZOLAMIDE
     Indication: Product used for unknown indication
     Route: 065
  91. BRINZOLAMIDE [Interacting]
     Active Substance: BRINZOLAMIDE
     Route: 065
  92. BUPRENORPHINE [Interacting]
     Active Substance: BUPRENORPHINE
     Indication: Product used for unknown indication
     Dosage: 35 GRAM, 1/HR
     Route: 062
  93. CELECOXIB [Interacting]
     Active Substance: CELECOXIB
     Indication: Product used for unknown indication
     Route: 065
  94. CHOLECALCIFEROL [Interacting]
     Active Substance: CHOLECALCIFEROL
     Indication: Product used for unknown indication
     Route: 065
  95. CHOLECALCIFEROL [Interacting]
     Active Substance: CHOLECALCIFEROL
     Route: 065
  96. CHOLECALCIFEROL [Interacting]
     Active Substance: CHOLECALCIFEROL
     Route: 065
  97. CHOLECALCIFEROL [Interacting]
     Active Substance: CHOLECALCIFEROL
     Indication: Product used for unknown indication
     Route: 065
  98. CHOLECALCIFEROL [Interacting]
     Active Substance: CHOLECALCIFEROL
     Indication: Product used for unknown indication
     Route: 065
  99. CILAZAPRIL ANHYDROUS [Interacting]
     Active Substance: CILAZAPRIL ANHYDROUS
     Indication: Product used for unknown indication
     Route: 065
  100. DONEPEZIL HYDROCHLORIDE [Interacting]
     Active Substance: DONEPEZIL HYDROCHLORIDE
     Indication: Product used for unknown indication
     Route: 048
  101. DILTIAZEM HYDROCHLORIDE [Interacting]
     Active Substance: DILTIAZEM HYDROCHLORIDE
     Indication: Product used for unknown indication
     Route: 065
  102. DOCETAXEL [Interacting]
     Active Substance: DOCETAXEL
     Indication: Product used for unknown indication
     Route: 065
  103. DUTASTERIDE [Interacting]
     Active Substance: DUTASTERIDE
     Indication: Product used for unknown indication
     Route: 065
  104. DUTASTERIDE [Interacting]
     Active Substance: DUTASTERIDE
     Route: 065
  105. ESCITALOPRAM OXALATE [Interacting]
     Active Substance: ESCITALOPRAM OXALATE
     Indication: Product used for unknown indication
     Route: 048
  106. ESOMEPRAZOLE [Interacting]
     Active Substance: ESOMEPRAZOLE
     Indication: Product used for unknown indication
     Route: 065
  107. ETANERCEPT [Interacting]
     Active Substance: ETANERCEPT
     Indication: Blood pressure measurement
     Route: 065
  108. EZETIMIBE [Interacting]
     Active Substance: EZETIMIBE
     Indication: Product used for unknown indication
     Route: 048
  109. ENOXAPARIN SODIUM [Interacting]
     Active Substance: ENOXAPARIN SODIUM
     Indication: Product used for unknown indication
     Route: 065
  110. ESCHERICHIA COLI [Interacting]
     Active Substance: ESCHERICHIA COLI
     Indication: Product used for unknown indication
     Route: 065
  111. ESCHERICHIA COLI [Interacting]
     Active Substance: ESCHERICHIA COLI
     Route: 065
  112. EXEMESTANE [Interacting]
     Active Substance: EXEMESTANE
     Indication: Product used for unknown indication
     Route: 065
  113. FLUVASTATIN [Interacting]
     Active Substance: FLUVASTATIN SODIUM
     Indication: Product used for unknown indication
     Route: 065
  114. FENOFIBRATE [Interacting]
     Active Substance: FENOFIBRATE
     Indication: Product used for unknown indication
     Route: 065
  115. NORFLOXACIN [Interacting]
     Active Substance: NORFLOXACIN
     Indication: Product used for unknown indication
     Route: 065
  116. FLUOXETINE HYDROCHLORIDE [Interacting]
     Active Substance: FLUOXETINE HYDROCHLORIDE
     Indication: Product used for unknown indication
     Route: 065
  117. GINKGO [Interacting]
     Active Substance: GINKGO
     Indication: Product used for unknown indication
     Route: 065
  118. GINKGO [Interacting]
     Active Substance: GINKGO
     Route: 065
  119. GLUCOSAMINE [Interacting]
     Active Substance: GLUCOSAMINE
     Indication: Product used for unknown indication
     Route: 065
  120. HUMAN IMMUNOGLOBULIN G [Interacting]
     Active Substance: HUMAN IMMUNOGLOBULIN G
     Indication: Product used for unknown indication
     Route: 065
  121. HYDROCHLOROTHIAZIDE [Interacting]
     Active Substance: HYDROCHLOROTHIAZIDE
     Indication: Product used for unknown indication
     Route: 065
  122. IBANDRONATE SODIUM [Interacting]
     Active Substance: IBANDRONATE SODIUM
     Indication: Product used for unknown indication
     Route: 065
  123. IMATINIB MESYLATE [Interacting]
     Active Substance: IMATINIB MESYLATE
     Indication: Product used for unknown indication
     Route: 065
  124. IMATINIB MESYLATE [Interacting]
     Active Substance: IMATINIB MESYLATE
     Route: 065
  125. INDOMETHACIN SODIUM [Interacting]
     Active Substance: INDOMETHACIN SODIUM
     Indication: Product used for unknown indication
     Route: 065
  126. IODINE (IODINE) [Interacting]
     Active Substance: IODINE
     Indication: Product used for unknown indication
     Route: 065
  127. LETROZOLE [Interacting]
     Active Substance: LETROZOLE
     Indication: Product used for unknown indication
     Route: 065
  128. LEVOCETIRIZINE DIHYDROCHLORIDE [Interacting]
     Active Substance: LEVOCETIRIZINE DIHYDROCHLORIDE
     Indication: Product used for unknown indication
     Route: 065
  129. LEDIPASVIR [Interacting]
     Active Substance: LEDIPASVIR
     Indication: Product used for unknown indication
     Route: 065
  130. MIRTAZAPINE [Interacting]
     Active Substance: MIRTAZAPINE
     Indication: Product used for unknown indication
     Route: 048
  131. MYCOPHENOLIC ACID [Interacting]
     Active Substance: MYCOPHENOLIC ACID
     Indication: Product used for unknown indication
     Route: 065
  132. NILOTINIB [Interacting]
     Active Substance: NILOTINIB
     Indication: Product used for unknown indication
     Route: 065
  133. NIMESULIDE [Interacting]
     Active Substance: NIMESULIDE
     Indication: Product used for unknown indication
     Route: 065
  134. NITROGLYCERIN [Interacting]
     Active Substance: NITROGLYCERIN
     Indication: Product used for unknown indication
     Route: 065
  135. ACETAMINOPHEN [Interacting]
     Active Substance: ACETAMINOPHEN
     Indication: Product used for unknown indication
     Route: 065
  136. PRAVASTATIN SODIUM [Interacting]
     Active Substance: PRAVASTATIN SODIUM
     Indication: Product used for unknown indication
     Route: 065
  137. PREGABALIN [Interacting]
     Active Substance: PREGABALIN
     Route: 065
  138. PREGABALIN [Interacting]
     Active Substance: PREGABALIN
     Indication: Product used for unknown indication
     Route: 065
  139. PENTAZOCINE [Interacting]
     Active Substance: PENTAZOCINE
     Indication: Product used for unknown indication
     Route: 065
  140. PENTOXIFYLLINE [Interacting]
     Active Substance: PENTOXIFYLLINE
     Indication: Product used for unknown indication
     Route: 065
  141. PENTOXIFYLLINE [Interacting]
     Active Substance: PENTOXIFYLLINE
     Route: 065
  142. PITAVASTATIN [Interacting]
     Active Substance: PITAVASTATIN
     Indication: Product used for unknown indication
     Route: 065
  143. PITAVASTATIN [Interacting]
     Active Substance: PITAVASTATIN
     Route: 065
  144. PITAVASTATIN [Interacting]
     Active Substance: PITAVASTATIN
     Route: 065
  145. POTASSIUM IODIDE [Interacting]
     Active Substance: POTASSIUM IODIDE
     Indication: Product used for unknown indication
     Route: 065
  146. POTASSIUM IODIDE [Interacting]
     Active Substance: POTASSIUM IODIDE
     Route: 065
  147. PROPRANOLOL [Interacting]
     Active Substance: PROPRANOLOL HYDROCHLORIDE
     Indication: Product used for unknown indication
     Route: 065
  148. RIBAVIRIN [Interacting]
     Active Substance: RIBAVIRIN
     Indication: Product used for unknown indication
     Route: 065
  149. SERTRALINE HYDROCHLORIDE [Interacting]
     Active Substance: SERTRALINE HYDROCHLORIDE
     Indication: Product used for unknown indication
     Route: 065
  150. SIMVASTATIN [Interacting]
     Active Substance: SIMVASTATIN
     Indication: Product used for unknown indication
     Route: 048
  151. SODIUM PICOSULFATE [Interacting]
     Active Substance: SODIUM PICOSULFATE
     Indication: Product used for unknown indication
     Route: 062
  152. SODIUM PICOSULFATE [Interacting]
     Active Substance: SODIUM PICOSULFATE
     Route: 062
  153. SOFOSBUVIR [Interacting]
     Active Substance: SOFOSBUVIR
     Indication: Product used for unknown indication
     Route: 065
  154. TAMSULOSIN HYDROCHLORIDE [Interacting]
     Active Substance: TAMSULOSIN HYDROCHLORIDE
     Indication: Product used for unknown indication
     Route: 062
  155. TAMSULOSIN HYDROCHLORIDE [Interacting]
     Active Substance: TAMSULOSIN HYDROCHLORIDE
     Indication: Product used for unknown indication
     Route: 065
  156. TAMSULOSIN HYDROCHLORIDE [Interacting]
     Active Substance: TAMSULOSIN HYDROCHLORIDE
     Indication: Product used for unknown indication
     Route: 065
  157. TELMISARTAN [Interacting]
     Active Substance: TELMISARTAN
     Indication: Product used for unknown indication
     Route: 065
  158. TOCILIZUMAB [Interacting]
     Active Substance: TOCILIZUMAB
     Indication: Product used for unknown indication
     Route: 065
  159. TRAMADOL HYDROCHLORIDE [Interacting]
     Active Substance: TRAMADOL HYDROCHLORIDE
     Indication: Product used for unknown indication
     Route: 062
  160. VERAPAMIL HYDROCHLORIDE [Interacting]
     Active Substance: VERAPAMIL HYDROCHLORIDE
     Indication: Product used for unknown indication
     Route: 065
  161. VORTIOXETINE [Interacting]
     Active Substance: VORTIOXETINE
     Indication: Product used for unknown indication
     Route: 065
  162. VORTIOXETINE [Interacting]
     Active Substance: VORTIOXETINE
     Route: 065
  163. VORTIOXETINE [Interacting]
     Active Substance: VORTIOXETINE
     Route: 065
  164. ZOLEDRONIC ACID [Interacting]
     Active Substance: ZOLEDRONIC ACID
     Indication: Product used for unknown indication
     Route: 065

REACTIONS (44)
  - Haemorrhagic stroke [Fatal]
  - Altered state of consciousness [Fatal]
  - Nausea [Fatal]
  - Drug interaction [Fatal]
  - Cardio-respiratory arrest [Fatal]
  - Headache [Fatal]
  - Sepsis [Fatal]
  - Ascites [Fatal]
  - Ocular discomfort [Fatal]
  - Haematemesis [Fatal]
  - Asthenia [Fatal]
  - Generalised oedema [Fatal]
  - Myalgia [Fatal]
  - Head discomfort [Fatal]
  - Presyncope [Fatal]
  - Photophobia [Fatal]
  - Malaise [Fatal]
  - Urinary tract disorder [Fatal]
  - Diplopia [Fatal]
  - Syncope [Fatal]
  - Abdominal pain upper [Fatal]
  - Coma [Fatal]
  - Tinnitus [Fatal]
  - Eye pain [Fatal]
  - Fall [Fatal]
  - Amaurosis fugax [Fatal]
  - Haematuria [Fatal]
  - Vomiting [Fatal]
  - Somnolence [Fatal]
  - Fatigue [Fatal]
  - Cough [Fatal]
  - Insomnia [Fatal]
  - Vision blurred [Fatal]
  - Arthralgia [Fatal]
  - Pruritus [Fatal]
  - Diarrhoea [Fatal]
  - Blood pressure increased [Fatal]
  - Dizziness [Fatal]
  - Tachycardia [Fatal]
  - Pyrexia [Fatal]
  - Blindness [Fatal]
  - Decreased appetite [Fatal]
  - Dyspnoea [Fatal]
  - Chills [Fatal]
